FAERS Safety Report 6435430-X (Version None)
Quarter: 2009Q4

REPORT INFORMATION
  Report Type: 
  Country: None (occurrence: None)
  Receive Date: 20091106
  Receipt Date: 20091022
  Transmission Date: 20100525
  Serious: Yes (Other)
  Sender: FDA-Public Use
  Company Number: DSA_41649_2009

PATIENT
  Sex: Female

DRUGS (12)
  1. XENAZINE [Suspect]
     Indication: HUNTINGTON'S CHOREA
     Dosage: 12.5 MG TID
     Dates: start: 20090626
  2. PROZAC [Concomitant]
  3. ACTONEL [Concomitant]
  4. XANAX [Concomitant]
  5. NEURONTIN [Concomitant]
  6. NICOTINE [Concomitant]
  7. SENOKOT [Concomitant]
  8. OSCAL 500-D [Concomitant]
  9. ZOCOR [Concomitant]
  10. PRILOSEC [Concomitant]
  11. ULTRAM [Concomitant]
  12. TYLENOL (CAPLET) [Concomitant]

REACTIONS (5)
  - AGGRESSION [None]
  - AGITATION [None]
  - ANGER [None]
  - RESTLESSNESS [None]
  - SCREAMING [None]
